FAERS Safety Report 14571618 (Version 1)
Quarter: 2018Q1

REPORT INFORMATION
  Report Type: Spontaneous
  Country: US (occurrence: US)
  Receive Date: 20180226
  Receipt Date: 20180226
  Transmission Date: 20180509
  Serious: No
  Sender: FDA-Public Use
  Company Number: US-PFIZER INC-2018078647

PATIENT
  Age: 47 Year
  Sex: Female
  Weight: 77.11 kg

DRUGS (2)
  1. LEVOTHYROXINE. [Concomitant]
     Active Substance: LEVOTHYROXINE
     Dosage: UNK
  2. LYRICA [Suspect]
     Active Substance: PREGABALIN
     Indication: FIBROMYALGIA
     Dosage: 450 MG, DAILY
     Route: 048
     Dates: start: 201712

REACTIONS (7)
  - Withdrawal syndrome [Unknown]
  - Feeling of body temperature change [Unknown]
  - Feeling abnormal [Not Recovered/Not Resolved]
  - Asthenia [Unknown]
  - Headache [Unknown]
  - Pain [Not Recovered/Not Resolved]
  - Thinking abnormal [Unknown]

NARRATIVE: CASE EVENT DATE: 201802
